FAERS Safety Report 18658551 (Version 1)
Quarter: 2020Q4

REPORT INFORMATION
  Report Type: Spontaneous
  Country: US (occurrence: US)
  Receive Date: 20201224
  Receipt Date: 20201224
  Transmission Date: 20210114
  Serious: Yes (Hospitalization, Other)
  Sender: FDA-Public Use
  Company Number: US-BIOVITRUM-2020US7757

PATIENT
  Sex: Female
  Weight: 4 kg

DRUGS (6)
  1. VITAMIN-D [Concomitant]
     Active Substance: VITAMIN D NOS
  2. PEPCID [Concomitant]
     Active Substance: FAMOTIDINE
  3. FAMOTIDINE. [Suspect]
     Active Substance: FAMOTIDINE
  4. CHOLECALCIFEROL [Concomitant]
     Active Substance: CHOLECALCIFEROL
  5. SYNAGIS [Suspect]
     Active Substance: PALIVIZUMAB
     Indication: PRODUCT USED FOR UNKNOWN INDICATION
     Route: 030
     Dates: start: 20201207
  6. BIO-D-MULSION [Concomitant]

REACTIONS (2)
  - Congenital diaphragmatic hernia [Unknown]
  - Crying [Unknown]
